FAERS Safety Report 5926409-2 (Version None)
Quarter: 2008Q4

REPORT INFORMATION
  Report Type: 
  Country: None (occurrence: None)
  Receive Date: 20081022
  Receipt Date: 20081014
  Transmission Date: 20090506
  Serious: Yes (Disabling)
  Sender: FDA-Public Use
  Company Number: GB-AMGEN-UK313822

PATIENT
  Sex: Female
  Weight: 87.6 kg

DRUGS (5)
  1. NEULASTA [Suspect]
     Dates: start: 20080612
  2. CYCLOPHOSPHAMIDE [Suspect]
     Route: 042
     Dates: start: 20080614
  3. FLUOROURACIL [Suspect]
     Route: 042
     Dates: start: 20080814
  4. METHOTREXATE [Suspect]
     Route: 042
     Dates: start: 20080814
  5. EPIRUBICIN [Concomitant]
     Dates: start: 20080612

REACTIONS (1)
  - DEAFNESS [None]
